FAERS Safety Report 16038297 (Version 1)
Quarter: 2019Q1

REPORT INFORMATION
  Report Type: Spontaneous
  Country: AU (occurrence: AU)
  Receive Date: 20190305
  Receipt Date: 20190305
  Transmission Date: 20190418
  Serious: Yes (Other)
  Sender: FDA-Public Use
  Company Number: AU-SEPTODONT-201905049

PATIENT
  Age: 35 Year
  Sex: Female

DRUGS (1)
  1. SEPTANEST 1/100.000 [Suspect]
     Active Substance: ARTICAINE HYDROCHLORIDE\EPINEPHRINE HYDROCHLORIDE
     Indication: DENTAL LOCAL ANAESTHESIA

REACTIONS (1)
  - Abortion spontaneous [Unknown]
